FAERS Safety Report 10029230 (Version 2)
Quarter: 2014Q2

REPORT INFORMATION
  Report Type: Report from Study
  Country: NL (occurrence: NL)
  Receive Date: 20140321
  Receipt Date: 20140625
  Transmission Date: 20141212
  Serious: Yes (Death, Other)
  Sender: FDA-Public Use
  Company Number: PHHY2014NL032437

PATIENT
  Age: 86 Year
  Sex: Male

DRUGS (7)
  1. ZOMETA [Suspect]
     Indication: PROSTATE CANCER METASTATIC
     Dosage: 4 MG / 100 ML ONCE EVERY 4 WEEKS
     Route: 042
  2. ZOMETA [Suspect]
     Indication: METASTASES TO BONE
  3. LUCRIN [Concomitant]
     Dosage: UNK UKN, UNK
  4. CASODEX [Concomitant]
     Dosage: UNK UKN, UNK
  5. ANTICOAGULANTS [Concomitant]
     Dosage: UNK UKN, UNK
  6. VERAPAMIL [Concomitant]
     Dosage: 80 MG, TID
  7. SIMVA [Concomitant]
     Dosage: 40 MG, QD

REACTIONS (3)
  - Transient ischaemic attack [Fatal]
  - Prostate cancer metastatic [Fatal]
  - Malignant neoplasm progression [Fatal]
